FAERS Safety Report 7943995-1 (Version None)
Quarter: 2011Q4

REPORT INFORMATION
  Report Type: 
  Country: None (occurrence: None)
  Receive Date: 20111128
  Receipt Date: 20111116
  Transmission Date: 20120403
  Serious: Yes (Hospitalization)
  Sender: FDA-Public Use
  Company Number: VE-ROCHE-1015723

PATIENT
  Sex: Male

DRUGS (4)
  1. XOLAIR [Suspect]
     Indication: ASTHMA
     Route: 065
  2. ALBUTEROL SULFATE AUTOHALER [Concomitant]
     Dosage: REPORTED AS SALBUTAN
     Route: 065
  3. METICORTELONE [Concomitant]
     Route: 065
  4. ALVESCO [Concomitant]
     Route: 065

REACTIONS (2)
  - LUNG NEOPLASM [None]
  - ASTHMATIC CRISIS [None]
